FAERS Safety Report 6723175-8 (Version None)
Quarter: 2010Q2

REPORT INFORMATION
  Report Type: 
  Country: None (occurrence: None)
  Receive Date: 20100513
  Receipt Date: 20100507
  Transmission Date: 20101027
  Serious: Yes (Other)
  Sender: FDA-Public Use
  Company Number: US-JNJFOC-20100302968

PATIENT
  Sex: Female
  Weight: 90.72 kg

DRUGS (6)
  1. FENTANYL CITRATE [Suspect]
     Indication: COMPLEX REGIONAL PAIN SYNDROME
     Route: 062
  2. UNSPECIFIED FENTANYL SYSTEM [Suspect]
     Indication: COMPLEX REGIONAL PAIN SYNDROME
     Route: 062
  3. DITROPAN [Concomitant]
     Indication: URINARY TRACT DISORDER
     Route: 048
  4. ZANTAC [Concomitant]
     Indication: GASTROOESOPHAGEAL REFLUX DISEASE
     Route: 048
  5. PAXIL [Concomitant]
     Indication: DEPRESSION
     Route: 048
  6. TRAZODONE [Concomitant]
     Indication: SLEEP DISORDER THERAPY
     Route: 048

REACTIONS (3)
  - APPLICATION SITE PRURITUS [None]
  - APPLICATION SITE URTICARIA [None]
  - THYROID DISORDER [None]
